FAERS Safety Report 16316382 (Version 2)
Quarter: 2019Q2

REPORT INFORMATION
  Report Type: Report from Study
  Country: US (occurrence: US)
  Receive Date: 20190515
  Receipt Date: 20190515
  Transmission Date: 20190711
  Serious: Yes (Hospitalization, Other)
  Sender: FDA-Public Use
  Company Number: PHHY2019US111139

PATIENT
  Age: 57 Year
  Sex: Male
  Weight: 77.98 kg

DRUGS (6)
  1. B6 [Concomitant]
     Active Substance: PYRIDOXINE HYDROCHLORIDE
     Indication: TUBERCULOSIS
     Dosage: 100 OT, UNK
     Route: 065
  2. LINEZOLID. [Interacting]
     Active Substance: LINEZOLID
     Indication: TUBERCULOSIS
     Dosage: 600 OT, UNK
     Route: 065
     Dates: start: 20190410
  3. LAMPRENE [Suspect]
     Active Substance: CLOFAZIMINE
     Indication: TUBERCULOSIS
     Dosage: 200 MG, UNK
     Route: 048
     Dates: start: 20190422
  4. ZOFRAN [Suspect]
     Active Substance: ONDANSETRON HYDROCHLORIDE
     Indication: NAUSEA
     Dosage: UNK
     Route: 065
     Dates: start: 20190410
  5. LAMPRENE [Suspect]
     Active Substance: CLOFAZIMINE
     Dosage: 100 MG, UNK
     Route: 048
  6. PZA [Concomitant]
     Active Substance: PYRAZINAMIDE
     Indication: TUBERCULOSIS
     Dosage: 1750 MG, UNK
     Route: 065

REACTIONS (11)
  - Confusional state [Unknown]
  - Central nervous system lesion [Unknown]
  - Asthenia [Unknown]
  - Drug interaction [Unknown]
  - Tremor [Not Recovered/Not Resolved]
  - Dyspnoea exertional [Unknown]
  - Angina pectoris [Unknown]
  - Dyspnoea [Recovering/Resolving]
  - Vasogenic cerebral oedema [Unknown]
  - Balance disorder [Unknown]
  - Disturbance in attention [Unknown]

NARRATIVE: CASE EVENT DATE: 20190423
